FAERS Safety Report 10133820 (Version 1)
Quarter: 2014Q2

REPORT INFORMATION
  Report Type: Spontaneous
  Country: US (occurrence: US)
  Receive Date: 20140428
  Receipt Date: 20140428
  Transmission Date: 20141212
  Serious: Yes (Other)
  Sender: FDA-Public Use
  Company Number: US-ASTELLAS-2013US011083

PATIENT
  Age: 77 Year
  Sex: Male

DRUGS (1)
  1. LEXISCAN [Suspect]
     Indication: CHEST PAIN
     Route: 042
     Dates: start: 20131011, end: 20131011

REACTIONS (5)
  - Chest pain [Recovered/Resolved]
  - Heart rate increased [Recovered/Resolved]
  - Blood pressure decreased [Recovered/Resolved]
  - Nausea [Recovered/Resolved]
  - Dizziness [Recovered/Resolved]
